FAERS Safety Report 7283135-8 (Version None)
Quarter: 2011Q1

REPORT INFORMATION
  Report Type: 
  Country: None (occurrence: None)
  Receive Date: 20110209
  Receipt Date: 20110131
  Transmission Date: 20110831
  Serious: Yes (Hospitalization)
  Sender: FDA-Public Use
  Company Number: CO-ROCHE-756477

PATIENT
  Sex: Female

DRUGS (4)
  1. METOCLOPRAMIDE [Concomitant]
     Route: 048
  2. ENALAPRIL MALEATE [Concomitant]
     Route: 048
  3. PREDNISOLONE [Concomitant]
     Route: 048
  4. MYCOPHENOLATE MOFETIL [Suspect]
     Route: 048
     Dates: start: 20010114

REACTIONS (2)
  - MIGRAINE [None]
  - TRANSPLANT REJECTION [None]
